FAERS Safety Report 19469147 (Version 1)
Quarter: 2021Q2

REPORT INFORMATION
  Report Type: Spontaneous
  Country: FR (occurrence: FR)
  Receive Date: 20210628
  Receipt Date: 20210628
  Transmission Date: 20210717
  Serious: Yes (Other)
  Sender: FDA-Public Use
  Company Number: FR-US-PROVELL PHARMACEUTICALS LLC-9247437

PATIENT
  Sex: Female

DRUGS (1)
  1. LEVOTHYROX [Suspect]
     Active Substance: LEVOTHYROXINE
     Indication: PRODUCT USED FOR UNKNOWN INDICATION
     Dates: start: 201706

REACTIONS (15)
  - Hypertension [Unknown]
  - Fatigue [Unknown]
  - Confusional state [Unknown]
  - Myalgia [Unknown]
  - Loss of consciousness [Unknown]
  - Hepatic pain [Unknown]
  - Amnesia [Unknown]
  - Balance disorder [Unknown]
  - Taste disorder [Unknown]
  - Pallor [Unknown]
  - Palpitations [Unknown]
  - Headache [Unknown]
  - Muscle spasms [Unknown]
  - Alopecia [Unknown]
  - Back pain [Unknown]

NARRATIVE: CASE EVENT DATE: 2017
